FAERS Safety Report 21663807 (Version 1)
Quarter: 2022Q4

REPORT INFORMATION
  Report Type: Spontaneous
  Country: US (occurrence: None)
  Receive Date: 20221129
  Receipt Date: 20221129
  Transmission Date: 20230113
  Serious: Yes (Hospitalization)
  Sender: FDA-Public Use
  Company Number: None

PATIENT
  Age: 79 Year
  Sex: Female

DRUGS (1)
  1. XELJANZ XR [Suspect]
     Active Substance: TOFACITINIB CITRATE
     Indication: Rheumatoid arthritis
     Dosage: FREQUENCY : DAILY;?
     Route: 048
     Dates: start: 20210127

REACTIONS (7)
  - Oropharyngeal pain [None]
  - Nausea [None]
  - Vomiting [None]
  - Decreased appetite [None]
  - Asthenia [None]
  - Candida test positive [None]
  - Candida infection [None]

NARRATIVE: CASE EVENT DATE: 20221122
